FAERS Safety Report 17679574 (Version 1)
Quarter: 2020Q2

REPORT INFORMATION
  Report Type: Spontaneous
  Country: US (occurrence: US)
  Receive Date: 20200416
  Receipt Date: 20200416
  Transmission Date: 20200714
  Serious: Yes (Death)
  Sender: FDA-Public Use
  Company Number: None

PATIENT
  Age: 85 Year
  Sex: Male

DRUGS (1)
  1. ACTEMRA [Suspect]
     Active Substance: TOCILIZUMAB
     Indication: CORONAVIRUS INFECTION
     Route: 058
     Dates: start: 20200411

REACTIONS (3)
  - Off label use [None]
  - Coronavirus infection [None]
  - General physical health deterioration [None]

NARRATIVE: CASE EVENT DATE: 20200416
